FAERS Safety Report 8708551 (Version 3)
Quarter: 2012Q4

REPORT INFORMATION
  Report Type: 
  Country: GB (occurrence: GB)
  Receive Date: 20120806
  Receipt Date: 20121111
  Transmission Date: 20130627
  Serious: Yes (Other)
  Sender: FDA-Public Use
  Company Number: PHFR2012GB004284

PATIENT
  Sex: Male

DRUGS (6)
  1. CLOZARIL [Suspect]
     Indication: SCHIZOPHRENIA
     Dosage: 250 mg, UNK
     Route: 048
     Dates: start: 20100720
  2. FLUOXETINE [Concomitant]
     Indication: DEPRESSED MOOD
     Dosage: 60 mg, UNK
     Route: 048
     Dates: start: 201009
  3. ARIPIPRAZOLE [Concomitant]
     Indication: SCHIZOPHRENIA
     Dosage: 30 mg, UNK
     Route: 048
     Dates: start: 201201
  4. LACTULOSE [Concomitant]
     Indication: CONSTIPATION
     Dosage: 30 ml, UNK
     Route: 048
  5. SENNA [Concomitant]
     Indication: CONSTIPATION
     Dosage: 2 Tablets
     Route: 048
  6. RAMIPRIL [Concomitant]
     Indication: HYPERTENSION
     Dosage: 5 mg, UNK
     Route: 048
     Dates: start: 201103

REACTIONS (5)
  - Hyperthyroidism [Recovering/Resolving]
  - Dyspnoea [Recovering/Resolving]
  - Palpitations [Recovering/Resolving]
  - Depressed mood [Recovering/Resolving]
  - Mental impairment [Recovering/Resolving]
